FAERS Safety Report 10193772 (Version 1)
Quarter: 2014Q2

REPORT INFORMATION
  Report Type: Spontaneous
  Country: US (occurrence: US)
  Receive Date: 20140524
  Receipt Date: 20140524
  Transmission Date: 20141212
  Serious: No
  Sender: FDA-Public Use
  Company Number: US-SANOFI-AVENTIS-2013SA043331

PATIENT
  Sex: Female

DRUGS (4)
  1. LANTUS [Suspect]
     Indication: DIABETES MELLITUS
     Route: 051
  2. METFORMIN [Concomitant]
  3. GLIPIZIDE [Concomitant]
  4. GLIMEPIRIDE [Concomitant]

REACTIONS (1)
  - Adverse drug reaction [Unknown]
